FAERS Safety Report 5131738-9 (Version None)
Quarter: 2006Q4

REPORT INFORMATION
  Report Type: 
  Country: None (occurrence: None)
  Receive Date: 20061013
  Receipt Date: 20060928
  Transmission Date: 20070319
  Serious: Yes (Other)
  Sender: FDA-Public Use
  Company Number: NLWYE638919MAY06

PATIENT
  Sex: Male

DRUGS (3)
  1. EFFEXOR [Suspect]
     Dosage: 75 MG 1X PER 1 DAY
  2. ALCOHOL (ETHANOL, , 0) [Suspect]
  3. METAMFETAMINE (METAMFETAMINE, ,0) [Suspect]

REACTIONS (1)
  - AGGRESSION [None]
